FAERS Safety Report 5807770-6 (Version None)
Quarter: 2008Q3

REPORT INFORMATION
  Report Type: 
  Country: None (occurrence: None)
  Receive Date: 20080711
  Receipt Date: 20080701
  Transmission Date: 20090109
  Serious: Yes (Other)
  Sender: FDA-Public Use
  Company Number: US-PFIZER INC-2007062143

PATIENT
  Sex: Male
  Weight: 91.6 kg

DRUGS (10)
  1. CHANTIX [Suspect]
     Indication: SMOKING CESSATION THERAPY
     Route: 048
  2. HYDROCHLOROTHIAZIDE [Concomitant]
     Route: 048
  3. ASCORBIC ACID [Concomitant]
     Route: 048
  4. VITAMIN B [Concomitant]
     Route: 048
  5. VITAMIN E [Concomitant]
     Route: 048
  6. VITAMIN A [Concomitant]
     Route: 048
  7. VITAMIN D [Concomitant]
     Route: 048
  8. VITAMIN B COMPLEX CAP [Concomitant]
  9. ADVAIR DISKUS 100/50 [Concomitant]
     Route: 055
  10. SAW PALMETTO [Concomitant]
     Route: 048

REACTIONS (7)
  - DIZZINESS [None]
  - ORAL PAIN [None]
  - PNEUMONIA [None]
  - RASH MACULAR [None]
  - STOMACH DISCOMFORT [None]
  - SWOLLEN TONGUE [None]
  - WEIGHT DECREASED [None]
